FAERS Safety Report 4911482-0 (Version None)
Quarter: 2006Q1

REPORT INFORMATION
  Report Type: 
  Country: None (occurrence: None)
  Receive Date: 20060214
  Receipt Date: 20041109
  Transmission Date: 20060701
  Serious: Yes (Hospitalization, Other)
  Sender: FDA-Public Use
  Company Number: US-MERCK-0411USA01723

PATIENT
  Age: 73 Year
  Sex: Female

DRUGS (1)
  1. VIOXX [Suspect]
     Indication: ARTHRITIS
     Route: 048
     Dates: start: 20020101, end: 20040101

REACTIONS (15)
  - ANGINA PECTORIS [None]
  - ANXIETY DISORDER [None]
  - CEREBROVASCULAR ACCIDENT [None]
  - DEEP VEIN THROMBOSIS [None]
  - EXTRASYSTOLES [None]
  - FALL [None]
  - HYPERHIDROSIS [None]
  - HYPERTENSION [None]
  - PALPITATIONS [None]
  - PULMONARY EMBOLISM [None]
  - SYNCOPE [None]
  - TACHYARRHYTHMIA [None]
  - THROMBOSIS [None]
  - TREMOR [None]
  - URINARY TRACT INFECTION [None]
